FAERS Safety Report 21881457 (Version 1)
Quarter: 2023Q1

REPORT INFORMATION
  Report Type: Report from Study
  Country: CA (occurrence: CA)
  Receive Date: 20230119
  Receipt Date: 20230119
  Transmission Date: 20230418
  Serious: Yes (Hospitalization)
  Sender: FDA-Public Use
  Company Number: CA-JNJFOC-20230129853

PATIENT
  Age: 61 Year
  Sex: Female

DRUGS (1)
  1. REMICADE [Suspect]
     Active Substance: INFLIXIMAB
     Indication: Rheumatoid arthritis
     Route: 042
     Dates: start: 20221115

REACTIONS (3)
  - Pneumonia [Recovering/Resolving]
  - Bacteraemia [Recovering/Resolving]
  - Small intestinal obstruction [Unknown]

NARRATIVE: CASE EVENT DATE: 20230108
